FAERS Safety Report 7909822-3 (Version None)
Quarter: 2011Q4

REPORT INFORMATION
  Report Type: 
  Country: None (occurrence: None)
  Receive Date: 20111111
  Receipt Date: 20111109
  Transmission Date: 20120403
  Serious: Yes (Life-Threatening, Hospitalization)
  Sender: FDA-Public Use
  Company Number: SE-MERCK-1111SWE00019

PATIENT
  Age: 78 Year
  Sex: Female

DRUGS (5)
  1. ZETIA [Suspect]
     Route: 048
     Dates: start: 20110825, end: 20110915
  2. ASPIRIN [Concomitant]
     Route: 048
  3. ENALAPRIL MALEATE AND HYDROCHLOROTHIAZIDE [Concomitant]
     Route: 048
  4. CLOPIDOGREL BISULFATE [Concomitant]
     Route: 048
  5. METOPROLOL SUCCINATE [Concomitant]
     Route: 048

REACTIONS (3)
  - URTICARIA [None]
  - DYSPHONIA [None]
  - TONGUE OEDEMA [None]
